FAERS Safety Report 16616115 (Version 1)
Quarter: 2019Q3

REPORT INFORMATION
  Report Type: Spontaneous
  Country: US (occurrence: US)
  Receive Date: 20190723
  Receipt Date: 20190723
  Transmission Date: 20191004
  Serious: Yes (Other)
  Sender: FDA-Public Use
  Company Number: None

PATIENT
  Age: 53 Year
  Sex: Female
  Weight: 65.25 kg

DRUGS (14)
  1. TRAZODONE [Concomitant]
     Active Substance: TRAZODONE HYDROCHLORIDE
  2. MELOXICAM. [Concomitant]
     Active Substance: MELOXICAM
  3. LIQUID MULTI VITAMIN (CENTRUM) [Concomitant]
  4. ADVIL [Concomitant]
     Active Substance: IBUPROFEN
  5. VITAMIN D3 [Concomitant]
     Active Substance: CHOLECALCIFEROL
  6. VITAMIN B12 [Concomitant]
     Active Substance: CYANOCOBALAMIN
  7. MESTINON (PYRIDOSTYGMINE BROMIDE) [Concomitant]
  8. ALPRAZOLAM. [Concomitant]
     Active Substance: ALPRAZOLAM
  9. CERVICAL FUSION [Concomitant]
  10. FIRDAPSE [Suspect]
     Active Substance: AMIFAMPRIDINE
     Indication: MYASTHENIC SYNDROME
     Dosage: ?          QUANTITY:1 TABLET(S);?
     Route: 048
     Dates: start: 20190425, end: 20190427
  11. HYDROCODONE [Concomitant]
     Active Substance: HYDROCODONE
  12. VOLTAREN [Concomitant]
     Active Substance: DICLOFENAC SODIUM
  13. RANITIDINE. [Concomitant]
     Active Substance: RANITIDINE
  14. CALTRATE CALCIUM + D3 [Concomitant]

REACTIONS (9)
  - Confusional state [None]
  - Diplopia [None]
  - Paraesthesia oral [None]
  - Dry eye [None]
  - Cold sweat [None]
  - Hypersensitivity [None]
  - Paraesthesia [None]
  - Eyelid ptosis [None]
  - Musculoskeletal pain [None]

NARRATIVE: CASE EVENT DATE: 20190425
